FAERS Safety Report 7750076-9 (Version None)
Quarter: 2011Q3

REPORT INFORMATION
  Report Type: 
  Country: None (occurrence: None)
  Receive Date: 20110914
  Receipt Date: 20110909
  Transmission Date: 20111222
  Serious: Yes (Other)
  Sender: FDA-Public Use
  Company Number: US-PFIZER INC-2011212983

PATIENT
  Sex: Female
  Weight: 59 kg

DRUGS (4)
  1. ARMODAFINIL [Concomitant]
     Indication: SOMNOLENCE
     Dosage: 250 MG, 2X/DAY
     Route: 048
  2. KLONOPIN [Concomitant]
     Indication: ANXIETY
     Dosage: UNK
  3. EFFEXOR [Suspect]
     Indication: DEPRESSION
     Dosage: 300MG DAILY
     Route: 048
     Dates: start: 20071201
  4. EFFEXOR [Suspect]
     Dosage: 262.5MG DAILY
     Route: 048
     Dates: start: 20110901

REACTIONS (8)
  - ASTHENIA [None]
  - FATIGUE [None]
  - SUICIDAL IDEATION [None]
  - AGITATION [None]
  - HOMICIDAL IDEATION [None]
  - FEELING ABNORMAL [None]
  - NAUSEA [None]
  - ANXIETY [None]
